FAERS Safety Report 7919769-4 (Version None)
Quarter: 2011Q4

REPORT INFORMATION
  Report Type: 
  Country: None (occurrence: None)
  Receive Date: 20111117
  Receipt Date: 20111108
  Transmission Date: 20120403
  Serious: Yes (Other)
  Sender: FDA-Public Use
  Company Number: CA-JNJFOC-20111104887

PATIENT
  Sex: Male
  Weight: 111 kg

DRUGS (5)
  1. REMICADE [Suspect]
     Dosage: 36TH TREATMENT
     Route: 042
     Dates: start: 20110811
  2. DILAUDID [Concomitant]
     Indication: ANALGESIC THERAPY
  3. REMICADE [Suspect]
     Indication: ANKYLOSING SPONDYLITIS
     Route: 042
  4. PANTOPRAZOLE SODIUM [Concomitant]
  5. FLEXERIL [Concomitant]

REACTIONS (1)
  - NERVE ROOT INJURY [None]
